FAERS Safety Report 8299889-8 (Version None)
Quarter: 2012Q2

REPORT INFORMATION
  Report Type: 
  Country: None (occurrence: None)
  Receive Date: 20120419
  Receipt Date: 20120420
  Transmission Date: 20120825
  Serious: Yes (Hospitalization, Other)
  Sender: FDA-Public Use
  Company Number: AU-AMGEN-AUSSP2011067942

PATIENT
  Sex: Female

DRUGS (1)
  1. PROLIA [Suspect]
     Indication: OSTEOPOROSIS
     Dosage: UNK
     Dates: start: 20111001

REACTIONS (15)
  - SUICIDAL IDEATION [None]
  - SWELLING FACE [None]
  - ARTHRALGIA [None]
  - ABDOMINAL PAIN UPPER [None]
  - LIMB DISCOMFORT [None]
  - SKIN LESION [None]
  - BONE PAIN [None]
  - PALPITATIONS [None]
  - MYALGIA [None]
  - HEADACHE [None]
  - OEDEMA PERIPHERAL [None]
  - PARAESTHESIA [None]
  - THROAT IRRITATION [None]
  - RASH [None]
  - CHILLS [None]
